FAERS Safety Report 16538060 (Version 6)
Quarter: 2020Q4

REPORT INFORMATION
  Report Type: Spontaneous
  Country: US (occurrence: US)
  Receive Date: 20190708
  Receipt Date: 20201211
  Transmission Date: 20210113
  Serious: No
  Sender: FDA-Public Use
  Company Number: US-SA-2019SA176622

PATIENT

DRUGS (3)
  1. GLIPIZIDE. [Concomitant]
     Active Substance: GLIPIZIDE
     Dosage: UNK
     Route: 065
  2. LANTUS [Suspect]
     Active Substance: INSULIN GLARGINE
     Indication: TYPE 2 DIABETES MELLITUS
     Dosage: 34 IU, QD
     Route: 065
     Dates: start: 2015
  3. LANTUS [Suspect]
     Active Substance: INSULIN GLARGINE
     Dosage: 38- 50 IU, QD
     Route: 065

REACTIONS (6)
  - Blood glucose increased [Unknown]
  - Stress [Unknown]
  - Memory impairment [Unknown]
  - Product storage error [Unknown]
  - Thyroid disorder [Unknown]
  - Inappropriate schedule of product administration [Unknown]

NARRATIVE: CASE EVENT DATE: 2015
